FAERS Safety Report 8209909-4 (Version None)
Quarter: 2012Q1

REPORT INFORMATION
  Report Type: 
  Country: None (occurrence: None)
  Receive Date: 20120314
  Receipt Date: 20120305
  Transmission Date: 20120608
  Serious: Yes (Death, Other)
  Sender: FDA-Public Use
  Company Number: GB-ROCHE-GNE323944

PATIENT
  Age: 41 Year
  Sex: Male
  Weight: 95.102 kg

DRUGS (17)
  1. PRAVASTATIN [Concomitant]
     Indication: PRODUCT USED FOR UNKNOWN INDICATION
  2. VENTOLIN [Concomitant]
  3. PREDNISOLONE [Concomitant]
     Indication: PRODUCT USED FOR UNKNOWN INDICATION
  4. AMITRIPTYLINE HCL [Concomitant]
     Indication: PRODUCT USED FOR UNKNOWN INDICATION
  5. FLUTICASONE [Concomitant]
  6. ALBUTEROL [Concomitant]
  7. XOLAIR [Suspect]
     Indication: ASTHMA
     Dosage: 300 MG, 2/WEEK
     Route: 058
     Dates: start: 20100121
  8. OMEPRAZOLE [Concomitant]
     Indication: PRODUCT USED FOR UNKNOWN INDICATION
  9. ASCORBIC ACID [Concomitant]
  10. ALENDRONIC ACID [Concomitant]
  11. SERTRALINE HYDROCHLORIDE [Concomitant]
  12. FLUTICASONE PROPIONATE/SALMETEROL [Concomitant]
     Indication: PRODUCT USED FOR UNKNOWN INDICATION
  13. CALCEOS [Concomitant]
  14. IPRATROPIUM BROMIDE [Concomitant]
  15. FLUOXETINE HCL [Concomitant]
     Indication: PRODUCT USED FOR UNKNOWN INDICATION
  16. MONTELUKAST [Concomitant]
     Indication: PRODUCT USED FOR UNKNOWN INDICATION
  17. DOXAZOSIN MESYLATE [Concomitant]

REACTIONS (6)
  - HYPERTENSIVE HEART DISEASE [None]
  - DYSPNOEA [None]
  - HYPERTENSION [None]
  - CARDIAC ARREST [None]
  - LEFT VENTRICULAR HYPERTROPHY [None]
  - MYOCARDIAL ISCHAEMIA [None]
